FAERS Safety Report 7939376-7 (Version None)
Quarter: 2011Q4

REPORT INFORMATION
  Report Type: 
  Country: None (occurrence: None)
  Receive Date: 20111125
  Receipt Date: 20111116
  Transmission Date: 20120403
  Serious: Yes (Other)
  Sender: FDA-Public Use
  Company Number: NZ-BAYER-2011-111734

PATIENT
  Age: 46 Year
  Sex: Female

DRUGS (2)
  1. MIRENA [Suspect]
     Indication: CONTRACEPTION
     Dosage: UNK
     Route: 015
  2. MIRENA [Suspect]
     Indication: VAGINAL HAEMORRHAGE
     Dosage: UNK

REACTIONS (1)
  - BREAST CANCER FEMALE [None]
